FAERS Safety Report 19193792 (Version 1)
Quarter: 2021Q2

REPORT INFORMATION
  Report Type: Spontaneous
  Country: GB (occurrence: GB)
  Receive Date: 20210429
  Receipt Date: 20210429
  Transmission Date: 20210717
  Serious: Yes (Disabling, Other)
  Sender: FDA-Public Use
  Company Number: GB-TEVA-2021-GB-1905134

PATIENT
  Age: 22 Year
  Sex: Female
  Weight: 68 kg

DRUGS (10)
  1. CETRABEN EMOLLIENT CREAM [Concomitant]
  2. EUMOVATE [Suspect]
     Active Substance: CLOBETASONE BUTYRATE
     Indication: ECZEMA
     Dosage: EVERY OTHER DAY
     Route: 061
     Dates: start: 20170101, end: 20210306
  3. FLUCLOXACILLIN [Concomitant]
     Active Substance: FLUCLOXACILLIN
  4. HYDROXYZINE HYDROCHLORIDE. [Concomitant]
     Active Substance: HYDROXYZINE HYDROCHLORIDE
  5. PREDNISOLONE. [Concomitant]
     Active Substance: PREDNISOLONE
  6. BETNOVATE [Suspect]
     Active Substance: BETAMETHASONE
     Indication: ECZEMA
     Dosage: EVERY OTHER DAY
     Route: 061
     Dates: start: 20170101, end: 20210306
  7. ABROCITINIB. [Concomitant]
     Active Substance: ABROCITINIB
     Dates: start: 20200101
  8. FEXOFENADINE [Concomitant]
     Active Substance: FEXOFENADINE HYDROCHLORIDE
  9. HYDROCORTISONE. [Suspect]
     Active Substance: HYDROCORTISONE
     Indication: ECZEMA
     Route: 061
     Dates: start: 20130101, end: 20210306
  10. PROTOPIC [Concomitant]
     Active Substance: TACROLIMUS

REACTIONS (11)
  - Chills [Not Recovered/Not Resolved]
  - Pyrexia [Not Recovered/Not Resolved]
  - Insomnia [Not Recovered/Not Resolved]
  - Skin infection [Not Recovered/Not Resolved]
  - Skin weeping [Not Recovered/Not Resolved]
  - Skin burning sensation [Not Recovered/Not Resolved]
  - Drug withdrawal syndrome [Not Recovered/Not Resolved]
  - Rash pruritic [Not Recovered/Not Resolved]
  - Erythema [Not Recovered/Not Resolved]
  - Paraesthesia [Not Recovered/Not Resolved]
  - Skin exfoliation [Not Recovered/Not Resolved]

NARRATIVE: CASE EVENT DATE: 20210309
